FAERS Safety Report 4324459-3 (Version None)
Quarter: 2004Q1

REPORT INFORMATION
  Report Type: 
  Country: None (occurrence: None)
  Receive Date: 20040326
  Receipt Date: 20040216
  Transmission Date: 20041129
  Serious: No
  Sender: FDA-Public Use
  Company Number: US-GLAXOSMITHKLINE-A0498380A

PATIENT
  Sex: Female

DRUGS (5)
  1. ADVAIR DISKUS 100/50 [Suspect]
     Indication: ASTHMA
     Route: 055
  2. SINGULAIR [Suspect]
  3. ALLEGRA [Concomitant]
     Indication: SINUS DISORDER
  4. NASACORT [Concomitant]
     Indication: SINUS DISORDER
  5. DURATUSS [Concomitant]

REACTIONS (3)
  - DYSPHONIA [None]
  - HOARSENESS [None]
  - THROAT TIGHTNESS [None]
